FAERS Safety Report 5643786-0 (Version None)
Quarter: 2008Q1

REPORT INFORMATION
  Report Type: 
  Country: None (occurrence: None)
  Receive Date: 20080228
  Receipt Date: 20080218
  Transmission Date: 20080703
  Serious: Yes (Life-Threatening)
  Sender: FDA-Public Use
  Company Number: PK-SANOFI-SYNTHELABO-A01200801836

PATIENT
  Age: 53 Year
  Sex: Female

DRUGS (4)
  1. MIDAZOLAM HCL [Concomitant]
     Indication: ANAESTHESIA
     Dosage: 7.5 MG
     Route: 048
  2. ATRACURIUM BESYLATE [Suspect]
     Indication: ANAESTHESIA
     Dosage: 35 MG
     Route: 042
  3. SODIUM THIOPENTONE [Suspect]
     Indication: INDUCTION OF ANAESTHESIA
     Dosage: 350 MG
     Route: 041
  4. PETHIDINE [Suspect]
     Indication: INDUCTION OF ANAESTHESIA
     Dosage: 50 MG
     Route: 041

REACTIONS (3)
  - AIRWAY COMPLICATION OF ANAESTHESIA [None]
  - ANAPHYLACTIC SHOCK [None]
  - ELECTROCARDIOGRAM ST SEGMENT ELEVATION [None]
